FAERS Safety Report 21701254 (Version 1)
Quarter: 2022Q4

REPORT INFORMATION
  Report Type: Spontaneous
  Country: US (occurrence: None)
  Receive Date: 20221207
  Receipt Date: 20221207
  Transmission Date: 20230113
  Serious: Yes (Death)
  Sender: FDA-Public Use
  Company Number: None

PATIENT
  Age: 73 Year
  Sex: Female

DRUGS (1)
  1. PROCRIT [Suspect]
     Active Substance: ERYTHROPOIETIN
     Dosage: 40,000 UNITS  OTHER SUBCUTANEOUS
     Route: 058
     Dates: start: 20221006, end: 20221125

REACTIONS (1)
  - Death [None]

NARRATIVE: CASE EVENT DATE: 20221126
